FAERS Safety Report 10004053 (Version 2)
Quarter: 2014Q3

REPORT INFORMATION
  Report Type: Spontaneous
  Country: CH (occurrence: CH)
  Receive Date: 20140312
  Receipt Date: 20140804
  Transmission Date: 20150326
  Serious: Yes (Other)
  Sender: FDA-Public Use
  Company Number: CH-ABBVIE-14P-151-1210162-00

PATIENT
  Sex: Male

DRUGS (4)
  1. ZERIT [Suspect]
     Active Substance: STAVUDINE
     Indication: PRODUCT USED FOR UNKNOWN INDICATION
     Dates: start: 1997, end: 2012
  2. ZIAGEN [Concomitant]
     Active Substance: ABACAVIR SULFATE
     Indication: PRODUCT USED FOR UNKNOWN INDICATION
  3. 3TC [Concomitant]
     Active Substance: LAMIVUDINE
     Indication: PRODUCT USED FOR UNKNOWN INDICATION
  4. KALETRA [Suspect]
     Active Substance: LOPINAVIR\RITONAVIR
     Indication: PRODUCT USED FOR UNKNOWN INDICATION

REACTIONS (6)
  - Fat redistribution [Unknown]
  - Lipodystrophy acquired [Unknown]
  - CD4 lymphocytes decreased [Unknown]
  - Unevaluable event [Unknown]
  - Multifocal motor neuropathy [Recovering/Resolving]
  - Muscle atrophy [Unknown]

NARRATIVE: CASE EVENT DATE: 20140306
